FAERS Safety Report 9315053 (Version 4)
Quarter: 2013Q4

REPORT INFORMATION
  Report Type: Spontaneous
  Country: SE (occurrence: SE)
  Receive Date: 20130529
  Receipt Date: 20131210
  Transmission Date: 20140711
  Serious: Yes (Death, Hospitalization, Other)
  Sender: FDA-Public Use
  Company Number: SE-ELI_LILLY_AND_COMPANY-SE201305007220

PATIENT
  Sex: Male

DRUGS (4)
  1. ALIMTA [Suspect]
     Indication: LUNG ADENOCARCINOMA
     Dosage: UNK, UNKNOWN
     Route: 042
     Dates: start: 20130510
  2. CARBOPLATIN [Concomitant]
     Dosage: UNK
     Dates: start: 20130510
  3. VITAMIN B12                        /00056201/ [Concomitant]
     Indication: SUPPLEMENTATION THERAPY
  4. FOLIC ACID [Concomitant]
     Indication: SUPPLEMENTATION THERAPY

REACTIONS (14)
  - Multi-organ failure [Fatal]
  - Cardiac arrest [Fatal]
  - Sepsis [Fatal]
  - Pericarditis [Fatal]
  - Pyrexia [Unknown]
  - Cough [Unknown]
  - Malaise [Unknown]
  - C-reactive protein abnormal [Unknown]
  - Metastases to lung [Unknown]
  - Pleural effusion [Unknown]
  - Blood creatinine decreased [Unknown]
  - Blood sodium decreased [Unknown]
  - Blood calcium decreased [Unknown]
  - Off label use [Unknown]
